FAERS Safety Report 7809601 (Version 4)
Quarter: 2013Q4

REPORT INFORMATION
  Report Type: Spontaneous
  Country: US (occurrence: US)
  Receive Date: 20110211
  Receipt Date: 20131121
  Transmission Date: 20140711
  Serious: Yes (Hospitalization, Other)
  Sender: FDA-Public Use
  Company Number: US-BAYER-2011-013151

PATIENT
  Age: 20 Year
  Sex: Female
  Weight: 81.63 kg

DRUGS (21)
  1. YAZ [Suspect]
     Indication: PREMENSTRUAL SYNDROME
     Dosage: UNK
     Route: 048
     Dates: start: 2007
  2. LITHIUM [Concomitant]
     Indication: BIPOLAR DISORDER
  3. ELIXA [Concomitant]
     Indication: DEPRESSION
  4. SEROQUEL [Concomitant]
     Indication: BIPOLAR DISORDER
     Dosage: 25 MG, UNK
     Route: 048
  5. TOPIRAMATE [Concomitant]
     Indication: BIPOLAR DISORDER
  6. XANAX [Concomitant]
     Indication: BIPOLAR DISORDER
  7. DILAUDID [Concomitant]
     Indication: PANCREATIC DISORDER
  8. LUTERA-28 [Concomitant]
     Dosage: 0.1 MG, 20 MCG
     Route: 048
     Dates: start: 20081129
  9. FAMOTIDINE [Concomitant]
     Dosage: 40 MG, UNK
     Route: 048
  10. CLONAZEPAM [Concomitant]
     Dosage: 1 MG, UNK
     Route: 048
  11. SERTRALINE [Concomitant]
     Dosage: 50 MG, UNK
     Route: 048
  12. KETOROLAC TROMETHAMINE [Concomitant]
     Dosage: 30 MG/ML, UNK
     Route: 042
     Dates: start: 20081129
  13. KETOROLAC TROMETHAMINE [Concomitant]
     Dosage: 30 MG/ML, UNK
     Route: 042
     Dates: start: 20081217
  14. HYDROCODONE W/ACETAMINOPHEN [Concomitant]
     Dosage: 5 MG, 500 MG
     Route: 048
  15. PROMETHAZINE [Concomitant]
     Dosage: 25 MG, UNK
     Route: 048
  16. TRAMADOL [Concomitant]
     Dosage: 50 MG,3-4 TIMES DAILY AS NEEDED
     Route: 048
     Dates: start: 20081219
  17. MAXALT-MLT [Concomitant]
     Dosage: 10 MG, UNK
     Route: 048
  18. HYDROMORPHONE [Concomitant]
     Dosage: 2 MG/ML, UNK
     Route: 042
     Dates: start: 20081226
  19. GEODON [Concomitant]
  20. OMEPRAZOLE [Concomitant]
  21. FENTANYL [Concomitant]

REACTIONS (10)
  - Gallbladder disorder [None]
  - Cholecystitis chronic [Unknown]
  - Biliary dyskinesia [None]
  - Pain [None]
  - Emotional distress [None]
  - Aphagia [None]
  - Asthenia [None]
  - Fatigue [None]
  - Abdominal pain [None]
  - Dizziness [None]
